FAERS Safety Report 12937395 (Version 2)
Quarter: 2016Q4

REPORT INFORMATION
  Report Type: Spontaneous
  Country: JP (occurrence: JP)
  Receive Date: 20161114
  Receipt Date: 20161213
  Transmission Date: 20170207
  Serious: Yes (Death, Other)
  Sender: FDA-Public Use
  Company Number: PHJP2016JP028682

PATIENT
  Age: 85 Year
  Sex: Female

DRUGS (6)
  1. LASIX [Concomitant]
     Active Substance: FUROSEMIDE
     Indication: CARDIAC FAILURE CONGESTIVE
     Dosage: 20 MG, QD
     Route: 065
     Dates: start: 20160916
  2. EXELON PATCH [Suspect]
     Active Substance: RIVASTIGMINE
     Indication: DEMENTIA ALZHEIMER^S TYPE
     Dosage: PATCH2.5(CM2)
     Route: 062
     Dates: start: 20160923, end: 20160926
  3. PN TWIN [Concomitant]
     Indication: PRODUCT USED FOR UNKNOWN INDICATION
     Dosage: 1000 ML, UNK
     Route: 041
     Dates: start: 20160916
  4. ELEJECT [Concomitant]
     Indication: PRODUCT USED FOR UNKNOWN INDICATION
     Dosage: 1 BOTTLE PER DAY, UNK
     Route: 065
     Dates: start: 20160916
  5. FAMOTIDINE. [Concomitant]
     Active Substance: FAMOTIDINE
     Indication: PEPTIC ULCER
     Dosage: 20 MG, QD
     Route: 065
     Dates: start: 20160916
  6. OTSUKA MV [Concomitant]
     Indication: PRODUCT USED FOR UNKNOWN INDICATION
     Dosage: 1 BOTTLE PER DAY, UNK
     Route: 065
     Dates: start: 20160916

REACTIONS (6)
  - Seizure [Recovered/Resolved]
  - Blood creatinine increased [Fatal]
  - Cardiac failure [Fatal]
  - Blood potassium increased [Fatal]
  - Renal failure [Fatal]
  - Blood urea increased [Fatal]

NARRATIVE: CASE EVENT DATE: 20160925
